FAERS Safety Report 18916411 (Version 7)
Quarter: 2024Q2

REPORT INFORMATION
  Report Type: Other
  Country: CA (occurrence: None)
  Receive Date: 20210219
  Receipt Date: 20240511
  Transmission Date: 20240716
  Serious: Yes (Hospitalization)
  Sender: FDA-Public Use
  Company Number: CA-ROCHE-2768936

PATIENT
  Age: 29 Year
  Sex: Female

DRUGS (6)
  1. OCREVUS [Suspect]
     Active Substance: OCRELIZUMAB
     Indication: Relapsing-remitting multiple sclerosis
     Dosage: 300 MG AT DAY 0 AND 14, THEN 600 MG EVERY 6 MONTH
     Route: 042
     Dates: start: 20190716
  2. ACCUTANE [Concomitant]
     Active Substance: ISOTRETINOIN
  3. TRAMADOL [Concomitant]
     Active Substance: TRAMADOL\TRAMADOL HYDROCHLORIDE
  4. ACETAMINOPHEN [Concomitant]
     Active Substance: ACETAMINOPHEN
  5. CIPRALEX [Concomitant]
     Active Substance: ESCITALOPRAM OXALATE
     Indication: Anxiety
  6. DOXYCYCLINE [Concomitant]
     Active Substance: DOXYCYCLINE

REACTIONS (7)
  - Fatigue [Not Recovered/Not Resolved]
  - Brain fog [Not Recovered/Not Resolved]
  - Anxiety [Recovered/Resolved]
  - Oral herpes [Not Recovered/Not Resolved]
  - Ankle fracture [Recovered/Resolved]
  - Rhinitis [Not Recovered/Not Resolved]
  - Asthma [Not Recovered/Not Resolved]

NARRATIVE: CASE EVENT DATE: 20240424
